FAERS Safety Report 10167928 (Version 2)
Quarter: 2014Q2

REPORT INFORMATION
  Report Type: Spontaneous
  Country: US (occurrence: US)
  Receive Date: 20140512
  Receipt Date: 20140620
  Transmission Date: 20141212
  Serious: Yes (Hospitalization)
  Sender: FDA-Public Use
  Company Number: US-GLAXOSMITHKLINE-A1071923A

PATIENT
  Age: 75 Year
  Sex: Female

DRUGS (8)
  1. ADVAIR [Suspect]
     Indication: CHRONIC OBSTRUCTIVE PULMONARY DISEASE
     Dosage: 1PUFF TWICE PER DAY
     Route: 055
     Dates: start: 20091212
  2. ANTIBIOTIC UNSPECIFIED [Suspect]
     Indication: BRONCHITIS
     Route: 065
  3. SPIRIVA [Concomitant]
  4. ALBUTEROL NEBULIZED [Concomitant]
  5. SINGULAIR [Concomitant]
  6. ATORVASTATIN [Concomitant]
  7. LISINOPRIL [Concomitant]
  8. BABY ASPIRIN [Concomitant]

REACTIONS (9)
  - Bronchitis [Recovering/Resolving]
  - Malaise [Not Recovered/Not Resolved]
  - Vomiting [Recovering/Resolving]
  - Chronic obstructive pulmonary disease [Recovering/Resolving]
  - Dyspnoea [Recovering/Resolving]
  - Dehydration [Recovering/Resolving]
  - Surgery [Unknown]
  - Back disorder [Unknown]
  - Oxygen saturation decreased [Unknown]
